FAERS Safety Report 11234042 (Version 1)
Quarter: 2015Q3

REPORT INFORMATION
  Report Type: Spontaneous
  Country: US (occurrence: US)
  Receive Date: 20150702
  Receipt Date: 20150702
  Transmission Date: 20151125
  Serious: No
  Sender: FDA-Public Use
  Company Number: US-AMGEN-USASP2015064701

PATIENT
  Age: 85 Year
  Sex: Female

DRUGS (1)
  1. ENBREL [Suspect]
     Active Substance: ETANERCEPT
     Indication: RHEUMATOID ARTHRITIS
     Dosage: UNK
     Route: 065
     Dates: start: 1999, end: 201506

REACTIONS (4)
  - Wound [Not Recovered/Not Resolved]
  - Unevaluable event [Unknown]
  - Bronchitis [Unknown]
  - Scratch [Not Recovered/Not Resolved]

NARRATIVE: CASE EVENT DATE: 201506
